FAERS Safety Report 4437404-7 (Version None)
Quarter: 2004Q3

REPORT INFORMATION
  Report Type: 
  Country: None (occurrence: None)
  Receive Date: 20040827
  Receipt Date: 20040817
  Transmission Date: 20050211
  Serious: No
  Sender: FDA-Public Use
  Company Number: 04P-163-0270917-00

PATIENT
  Age: 54 Year
  Sex: Female
  Weight: 81.6475 kg

DRUGS (13)
  1. HUMIRA [Suspect]
     Indication: RHEUMATOID ARTHRITIS
     Dosage: 40 MG,  1 IN 2 WK,SUBCUTANEOUS
     Route: 058
     Dates: start: 20030101, end: 20040707
  2. AMLODIPINE BESYLATE [Concomitant]
  3. BUMETANIDE [Concomitant]
  4. PREDNISONE [Concomitant]
  5. ROFECOXIB [Concomitant]
  6. PILOCARPINE HYDROCHLORIDE [Concomitant]
  7. RISEDRONATE SODIUM [Concomitant]
  8. MULTI-VITAMINS [Concomitant]
  9. CALCIUM WITH VITAMIN D [Concomitant]
  10. IRON [Concomitant]
  11. ESTROGENS [Concomitant]
  12. ATENOLOL [Concomitant]
  13. LISINOPRIL [Concomitant]

REACTIONS (4)
  - OEDEMA PERIPHERAL [None]
  - PAIN [None]
  - SKIN ULCER [None]
  - STAPHYLOCOCCAL INFECTION [None]
